FAERS Safety Report 9872324 (Version 3)
Quarter: 2014Q1

REPORT INFORMATION
  Report Type: Report from Study
  Country: GB (occurrence: GB)
  Receive Date: 20140206
  Receipt Date: 20140314
  Transmission Date: 20141002
  Serious: Yes (Hospitalization)
  Sender: FDA-Public Use
  Company Number: GB-ROCHE-1343459

PATIENT
  Sex: Female

DRUGS (7)
  1. RANIBIZUMAB [Suspect]
     Indication: AGE-RELATED MACULAR DEGENERATION
     Route: 050
     Dates: start: 20111019
  2. RANIBIZUMAB [Suspect]
     Route: 050
     Dates: start: 20120411
  3. ASPIRIN [Concomitant]
     Route: 065
     Dates: start: 2000
  4. SPIRIVA [Concomitant]
     Route: 065
     Dates: start: 20080220
  5. AMLODIPINE [Concomitant]
     Route: 065
     Dates: start: 20120605
  6. FUROSEMIDE [Concomitant]
     Route: 065
     Dates: start: 20120605
  7. LISINOPRIL [Concomitant]
     Route: 065
     Dates: start: 20120605

REACTIONS (5)
  - Fall [Unknown]
  - Pneumonia [Recovered/Resolved]
  - Confusional state [Recovered/Resolved]
  - Oedema peripheral [Unknown]
  - Escherichia urinary tract infection [Recovered/Resolved]
